FAERS Safety Report 7462393-0 (Version None)
Quarter: 2011Q2

REPORT INFORMATION
  Report Type: 
  Country: None (occurrence: None)
  Receive Date: 20110506
  Receipt Date: 20110428
  Transmission Date: 20111010
  Serious: Yes (Hospitalization)
  Sender: FDA-Public Use
  Company Number: CN-NOVOPROD-325024

PATIENT
  Age: 60 Year
  Sex: Male
  Weight: 70 kg

DRUGS (5)
  1. NOVOLIN R [Suspect]
     Indication: TYPE 2 DIABETES MELLITUS
     Dosage: 20 IU+18 IU, 30 MINUTES BEFORE BREAKFAST AND DINNER, RESPECTIVELY.
     Route: 058
     Dates: end: 20100122
  2. NOVOLIN R [Suspect]
     Indication: TYPE 2 DIABETES MELLITUS
     Dosage: UNK IU, BEFORE EACH MEAL
     Route: 058
     Dates: end: 20100101
  3. NOVOLIN N [Suspect]
     Indication: TYPE 2 DIABETES MELLITUS
     Dosage: UNK IU, AT BEDTIME.
     Route: 058
     Dates: end: 20100101
  4. ORAL ANTIDIABETICS [Concomitant]
     Dosage: UNK
  5. NOVOMIX 30 [Suspect]
     Indication: TYPE 2 DIABETES MELLITUS
     Dosage: 22 U+16 U, 30 MINUTES BEFORE BREAKFAST AND DINNER, RESPECTIVELY.
     Route: 058
     Dates: start: 20090603, end: 20100101

REACTIONS (3)
  - INJECTION SITE NODULE [None]
  - INJECTION SITE PRURITUS [None]
  - BLOOD GLUCOSE INCREASED [None]
